FAERS Safety Report 14650299 (Version 1)
Quarter: 2018Q1

REPORT INFORMATION
  Report Type: Report from Study
  Country: NL (occurrence: NL)
  Receive Date: 20180316
  Receipt Date: 20180316
  Transmission Date: 20180509
  Serious: Yes (Life-Threatening)
  Sender: FDA-Public Use
  Company Number: PHHY2018NL043648

PATIENT
  Sex: Male

DRUGS (1)
  1. SIGNIFOR [Suspect]
     Active Substance: PASIREOTIDE
     Indication: NEUROENDOCRINE TUMOUR
     Dosage: 40 MG/ 2 ML (1X PER 4 WEEKS)
     Route: 030

REACTIONS (2)
  - Terminal state [Unknown]
  - Product use in unapproved indication [Unknown]
